FAERS Safety Report 21274463 (Version 1)
Quarter: 2022Q3

REPORT INFORMATION
  Report Type: Spontaneous
  Country: FR (occurrence: FR)
  Receive Date: 20220831
  Receipt Date: 20220831
  Transmission Date: 20221027
  Serious: Yes (Other)
  Sender: FDA-Public Use
  Company Number: None

PATIENT
  Age: 2 Year
  Sex: Female
  Weight: 10.5 kg

DRUGS (2)
  1. ACYCLOVIR [Suspect]
     Active Substance: ACYCLOVIR
     Indication: Varicella
     Route: 042
     Dates: start: 20220808, end: 20220816
  2. ZOVIRAX [Suspect]
     Active Substance: ACYCLOVIR
     Indication: Varicella
     Dosage: 200 MG/5 ML, ORAL SUSPENSION IN VIAL
     Route: 048
     Dates: end: 20220808

REACTIONS (1)
  - Acute kidney injury [Recovered/Resolved]

NARRATIVE: CASE EVENT DATE: 20220810
